FAERS Safety Report 25868621 (Version 6)
Quarter: 2025Q4

REPORT INFORMATION
  Report Type: Spontaneous
  Country: EU (occurrence: EU)
  Receive Date: 20251001
  Receipt Date: 20251113
  Transmission Date: 20260117
  Serious: Yes (Death, Other)
  Sender: NOVARTIS
  Company Number: EU-002147023-NVSC2025HU151949

PATIENT
  Age: 0 Year
  Sex: Female
  Weight: 4.1 kg

DRUGS (4)
  1. ZOLGENSMA [Suspect]
     Active Substance: ONASEMNOGENE ABEPARVOVEC-XIOI
     Indication: Spinal muscular atrophy
     Dosage: 24.8 ML (1X24.8 ML), ONCE/SINGLE
     Route: 042
     Dates: start: 20250919, end: 20250919
  2. PREDNISOLONE [Concomitant]
     Active Substance: PREDNISOLONE
     Indication: Gene therapy
     Dosage: 4 MG, QD (1X4 MG)
     Route: 054
     Dates: start: 20250918, end: 20250927
  3. FAMOTIDINE [Concomitant]
     Active Substance: FAMOTIDINE
     Indication: Prophylaxis
     Dosage: 4 MG, QD (2X2 MG)
     Route: 048
     Dates: start: 20250918, end: 20250927
  4. SODIUM CHLORIDE [Concomitant]
     Active Substance: SODIUM CHLORIDE
     Indication: Gene therapy
     Dosage: 20 ML (9MG/ML; 20 ML TOTAL) 1X
     Route: 042
     Dates: start: 20250919, end: 20250919

REACTIONS (25)
  - Cardio-respiratory arrest [Fatal]
  - Upper airway obstruction [Fatal]
  - Hypotonia [Unknown]
  - Poor truncal incurvation reflex [Unknown]
  - Head lag abnormal [Unknown]
  - Posture abnormal [Unknown]
  - Somnolence [Unknown]
  - Crying [Unknown]
  - Dyskinesia [Unknown]
  - Motor developmental delay [Unknown]
  - Blood bilirubin increased [Unknown]
  - Pyrexia [Recovered/Resolved]
  - Blood creatinine decreased [Unknown]
  - Monocyte count increased [Unknown]
  - Basophil count decreased [Unknown]
  - Mean cell volume increased [Unknown]
  - Platelet count decreased [Unknown]
  - Mean platelet volume increased [Unknown]
  - Prothrombin time shortened [Unknown]
  - Mean cell volume increased [Unknown]
  - Epistaxis [Unknown]
  - Feeling cold [Unknown]
  - Skin discolouration [Unknown]
  - Aspartate aminotransferase increased [Unknown]
  - Alanine aminotransferase increased [Unknown]

NARRATIVE: CASE EVENT DATE: 20250922
